FAERS Safety Report 25638159 (Version 1)
Quarter: 2025Q3

REPORT INFORMATION
  Report Type: Spontaneous
  Country: CA (occurrence: CA)
  Receive Date: 20250804
  Receipt Date: 20250804
  Transmission Date: 20251020
  Serious: Yes (Other)
  Sender: ROCHE
  Company Number: CA-002147023-NVSC2025CA120123

PATIENT
  Age: 28 Year
  Sex: Male
  Weight: 106 kg

DRUGS (10)
  1. OMALIZUMAB [Suspect]
     Active Substance: OMALIZUMAB
     Indication: Product used for unknown indication
     Route: 065
  2. ADVAIR HFA [Suspect]
     Active Substance: FLUTICASONE PROPIONATE\SALMETEROL XINAFOATE
     Indication: Product used for unknown indication
     Route: 065
  3. ARNUITY ELLIPTA [Suspect]
     Active Substance: FLUTICASONE FUROATE
     Indication: Asthma
     Dosage: 1 DOSAGE FORM, QD
     Route: 065
  4. BUDESONIDE\FORMOTEROL [Suspect]
     Active Substance: BUDESONIDE\FORMOTEROL
     Indication: Product used for unknown indication
     Dosage: 2 DOSAGE FORM, BID
     Route: 065
  5. EPINEPHRINE BITARTRATE [Suspect]
     Active Substance: EPINEPHRINE BITARTRATE
     Indication: Anaphylactic reaction
     Route: 050
  6. NASONEX [Suspect]
     Active Substance: MOMETASONE FUROATE
     Indication: Conjunctivitis
     Dosage: 2 DOSAGE FORM, QD (SPRAY METERED DOSE)
     Route: 065
  7. OLODATEROL HYDROCHLORIDE [Suspect]
     Active Substance: OLODATEROL HYDROCHLORIDE
     Indication: Product used for unknown indication
     Dosage: 2 DOSAGE FORM, QD
     Route: 065
  8. PREDNISONE ACETATE [Suspect]
     Active Substance: PREDNISONE ACETATE
     Indication: Product used for unknown indication
     Route: 065
  9. ALBUTEROL [Suspect]
     Active Substance: ALBUTEROL
     Indication: Asthma
     Route: 065
  10. SPIRIVA [Suspect]
     Active Substance: TIOTROPIUM BROMIDE MONOHYDRATE
     Indication: Product used for unknown indication
     Dosage: 2 DOSAGE FORM, QD
     Route: 065

REACTIONS (7)
  - Asthma [Not Recovered/Not Resolved]
  - Chest discomfort [Not Recovered/Not Resolved]
  - Dyspnoea [Not Recovered/Not Resolved]
  - Food allergy [Not Recovered/Not Resolved]
  - Sleep disorder due to a general medical condition [Not Recovered/Not Resolved]
  - Therapeutic product effect incomplete [Not Recovered/Not Resolved]
  - Wheezing [Not Recovered/Not Resolved]
